FAERS Safety Report 7392377-2 (Version None)
Quarter: 2011Q2

REPORT INFORMATION
  Report Type: 
  Country: None (occurrence: None)
  Receive Date: 20110404
  Receipt Date: 20101001
  Transmission Date: 20111010
  Serious: Yes (Other)
  Sender: FDA-Public Use
  Company Number: US-BAYER-201023655NA

PATIENT
  Sex: Female
  Weight: 81.633 kg

DRUGS (12)
  1. OCELLA [Suspect]
     Indication: PRODUCT USED FOR UNKNOWN INDICATION
     Route: 048
     Dates: start: 20040401, end: 20080901
  2. PHENAZOPYRIDINE HCL TAB [Concomitant]
     Dosage: UNK
     Dates: start: 20070101
  3. VICODIN [Concomitant]
     Dosage: UNK
     Dates: start: 20070101
  4. MOTRIN [Concomitant]
     Dosage: UNK
     Dates: start: 20070101
  5. YAZ [Suspect]
     Indication: CONTRACEPTION
     Dosage: UNK
     Route: 048
     Dates: start: 20080401, end: 20080601
  6. CIPRO [Concomitant]
     Dosage: UNK
     Dates: start: 20070101
  7. LEVAQUIN [Concomitant]
     Dosage: UNK
     Dates: start: 20070101
  8. FLEXERIL [Concomitant]
     Dosage: UNK
     Dates: start: 20070101
  9. DOXYCYCLIN [Concomitant]
     Dosage: UNK
     Dates: start: 20070101
  10. XANAX [Concomitant]
     Indication: ANXIETY
     Dosage: UNK
     Dates: start: 20060101
  11. YASMIN [Suspect]
     Indication: CONTRACEPTION
     Dosage: UNK
     Route: 048
     Dates: start: 20040901, end: 20071101
  12. AMOXICILLIN [Concomitant]

REACTIONS (4)
  - GALLBLADDER DISORDER [None]
  - BILIARY DYSKINESIA [None]
  - ABDOMINAL PAIN [None]
  - CHOLECYSTITIS CHRONIC [None]
